FAERS Safety Report 5630872-4 (Version None)
Quarter: 2008Q1

REPORT INFORMATION
  Report Type: 
  Country: None (occurrence: None)
  Receive Date: 20080219
  Receipt Date: 20080207
  Transmission Date: 20080703
  Serious: Yes (Hospitalization, Other)
  Sender: FDA-Public Use
  Company Number: GB-ROCHE-540772

PATIENT
  Age: 71 Year
  Sex: Female
  Weight: 100 kg

DRUGS (13)
  1. ORLISTAT [Suspect]
     Indication: OBESITY
     Route: 048
     Dates: start: 20071008
  2. PROZAC [Concomitant]
     Indication: DEPRESSION
     Dosage: IN THE MORNING.
     Route: 048
     Dates: start: 20061006
  3. CLOPIDOGREL [Concomitant]
     Indication: HYPERTENSION
     Dosage: IN THE MORNING.
     Route: 048
     Dates: start: 20080107
  4. BISOPROLOL FUMARATE [Concomitant]
     Indication: HYPERTENSION
     Dosage: AT NIGHT.
     Route: 048
     Dates: start: 20080107
  5. LISINOPRIL [Concomitant]
     Indication: HYPERTENSION
     Dosage: IN THE MORNING.
     Route: 048
     Dates: start: 20080107
  6. LANSOPRAZOLE [Concomitant]
     Indication: GASTRIC DISORDER
     Dosage: IN THE MORNING.
     Route: 048
     Dates: start: 20050427
  7. WARFARIN SODIUM [Concomitant]
     Indication: THROMBOSIS PROPHYLAXIS
     Dosage: IN THE EVENING.
     Route: 048
     Dates: start: 20080107
  8. SIMVASTATIN [Concomitant]
     Dosage: AT NIGHT
     Route: 048
     Dates: start: 20040728
  9. BECLOMETHASONE DIPROPIONATE [Concomitant]
     Dosage: DRUG NAME: CLENIL MODULITE CFC-FREE.
     Dates: start: 20071116
  10. MEBEVERINE HYDROCHLORIDE [Concomitant]
     Dates: start: 20050427
  11. SALAMOL [Concomitant]
     Dosage: AS REQUIRED; DRUG NAME: SALAMOL EASI-BREATHE.
     Dates: start: 20040909
  12. GLYCERYL TRINITRATE [Concomitant]
     Dosage: FORM: SPRAY. AS REQUIRED.
     Dates: start: 20020321
  13. CO-CODAMOL [Concomitant]
     Dates: start: 20001201

REACTIONS (4)
  - ACUTE CORONARY SYNDROME [None]
  - ACUTE MYOCARDIAL INFARCTION [None]
  - ATRIAL FIBRILLATION [None]
  - MYOCARDIAL INFARCTION [None]
